FAERS Safety Report 18915656 (Version 5)
Quarter: 2021Q3

REPORT INFORMATION
  Report Type: Spontaneous
  Country: US (occurrence: US)
  Receive Date: 20210219
  Receipt Date: 20210915
  Transmission Date: 20211014
  Serious: No
  Sender: FDA-Public Use
  Company Number: US-VIIV HEALTHCARE LIMITED-US2021AMR047647

PATIENT
  Age: 51 Year
  Sex: Male

DRUGS (3)
  1. CABENUVA [Suspect]
     Active Substance: CABOTEGRAVIR\RILPIVIRINE
  2. CABENUVA [Suspect]
     Active Substance: CABOTEGRAVIR\RILPIVIRINE
  3. CABENUVA [Suspect]
     Active Substance: CABOTEGRAVIR\RILPIVIRINE
     Indication: HIV INFECTION
     Dosage: UNK, IM INJECTION
     Route: 030

REACTIONS (14)
  - Discomfort [Recovered/Resolved]
  - Somnolence [Not Recovered/Not Resolved]
  - Anosmia [Not Recovered/Not Resolved]
  - Coronavirus infection [Recovering/Resolving]
  - Ageusia [Not Recovered/Not Resolved]
  - Illness [Unknown]
  - Headache [Recovered/Resolved]
  - Weight fluctuation [Unknown]
  - Cough [Recovered/Resolved]
  - Dysphonia [Not Recovered/Not Resolved]
  - Patient isolation [Unknown]
  - Oral herpes [Not Recovered/Not Resolved]
  - Ill-defined disorder [Unknown]
  - Nasopharyngitis [Recovered/Resolved]

NARRATIVE: CASE EVENT DATE: 202101
